FAERS Safety Report 13113133 (Version 29)
Quarter: 2024Q1

REPORT INFORMATION
  Report Type: Spontaneous
  Country: CA (occurrence: None)
  Receive Date: 20170113
  Receipt Date: 20240228
  Transmission Date: 20240410
  Serious: Yes (Disabling, Other)
  Sender: FDA-Public Use
  Company Number: CA-ORION CORPORATION ORION PHARMA-TREX2016-0862

PATIENT
  Age: 65 Year
  Sex: Female
  Weight: 95 kg

DRUGS (166)
  1. METHOTREXATE [Suspect]
     Active Substance: METHOTREXATE
     Indication: Rheumatoid arthritis
  2. METHOTREXATE [Suspect]
     Active Substance: METHOTREXATE
  3. METHOTREXATE [Suspect]
     Active Substance: METHOTREXATE
  4. METHOTREXATE [Suspect]
     Active Substance: METHOTREXATE
  5. METHOTREXATE [Suspect]
     Active Substance: METHOTREXATE
  6. METHOTREXATE [Suspect]
     Active Substance: METHOTREXATE
  7. METHOTREXATE [Suspect]
     Active Substance: METHOTREXATE
  8. METHOTREXATE [Suspect]
     Active Substance: METHOTREXATE
  9. METHOTREXATE [Suspect]
     Active Substance: METHOTREXATE
  10. ENBREL [Suspect]
     Active Substance: ETANERCEPT
     Indication: Rheumatoid arthritis
     Dates: start: 2013, end: 2013
  11. ENBREL [Suspect]
     Active Substance: ETANERCEPT
  12. ENBREL [Suspect]
     Active Substance: ETANERCEPT
     Dates: end: 2013
  13. ENBREL [Suspect]
     Active Substance: ETANERCEPT
  14. ENBREL [Suspect]
     Active Substance: ETANERCEPT
  15. ACTEMRA [Suspect]
     Active Substance: TOCILIZUMAB
     Indication: Rheumatoid arthritis
  16. ACTEMRA [Suspect]
     Active Substance: TOCILIZUMAB
  17. ACTEMRA [Suspect]
     Active Substance: TOCILIZUMAB
  18. ACTEMRA [Suspect]
     Active Substance: TOCILIZUMAB
  19. ACTEMRA [Suspect]
     Active Substance: TOCILIZUMAB
  20. ACTEMRA [Suspect]
     Active Substance: TOCILIZUMAB
  21. ACTEMRA [Suspect]
     Active Substance: TOCILIZUMAB
  22. ACTEMRA [Suspect]
     Active Substance: TOCILIZUMAB
  23. HUMIRA [Suspect]
     Active Substance: ADALIMUMAB
     Indication: Rheumatoid arthritis
     Dates: start: 2010
  24. HUMIRA [Suspect]
     Active Substance: ADALIMUMAB
  25. HUMIRA [Suspect]
     Active Substance: ADALIMUMAB
  26. HUMIRA [Suspect]
     Active Substance: ADALIMUMAB
  27. HUMIRA [Suspect]
     Active Substance: ADALIMUMAB
  28. HUMIRA [Suspect]
     Active Substance: ADALIMUMAB
  29. HUMIRA [Suspect]
     Active Substance: ADALIMUMAB
  30. ORENCIA [Suspect]
     Active Substance: ABATACEPT
     Indication: Rheumatoid arthritis
  31. ORENCIA [Suspect]
     Active Substance: ABATACEPT
  32. ORENCIA [Suspect]
     Active Substance: ABATACEPT
  33. ORENCIA [Suspect]
     Active Substance: ABATACEPT
  34. ORENCIA [Suspect]
     Active Substance: ABATACEPT
  35. ORENCIA [Suspect]
     Active Substance: ABATACEPT
  36. ORENCIA [Suspect]
     Active Substance: ABATACEPT
  37. ORENCIA [Suspect]
     Active Substance: ABATACEPT
  38. ORENCIA [Suspect]
     Active Substance: ABATACEPT
  39. REMICADE [Suspect]
     Active Substance: INFLIXIMAB
     Indication: Rheumatoid arthritis
  40. REMICADE [Suspect]
     Active Substance: INFLIXIMAB
     Indication: Psoriasis
  41. REMICADE [Suspect]
     Active Substance: INFLIXIMAB
     Indication: Ankylosing spondylitis
  42. REMICADE [Suspect]
     Active Substance: INFLIXIMAB
  43. REMICADE [Suspect]
     Active Substance: INFLIXIMAB
  44. REMICADE [Suspect]
     Active Substance: INFLIXIMAB
  45. REMICADE [Suspect]
     Active Substance: INFLIXIMAB
  46. REMICADE [Suspect]
     Active Substance: INFLIXIMAB
  47. REMICADE [Suspect]
     Active Substance: INFLIXIMAB
  48. RITUXAN [Suspect]
     Active Substance: RITUXIMAB
     Indication: Rheumatoid arthritis
     Dates: start: 2015, end: 20160216
  49. RITUXAN [Suspect]
     Active Substance: RITUXIMAB
  50. RITUXAN [Suspect]
     Active Substance: RITUXIMAB
  51. RITUXAN [Suspect]
     Active Substance: RITUXIMAB
  52. RITUXAN [Suspect]
     Active Substance: RITUXIMAB
     Dates: end: 20160216
  53. RITUXAN [Suspect]
     Active Substance: RITUXIMAB
  54. PLAQUENIL [Suspect]
     Active Substance: HYDROXYCHLOROQUINE SULFATE
     Indication: Rheumatoid arthritis
     Dates: start: 2007
  55. PLAQUENIL [Suspect]
     Active Substance: HYDROXYCHLOROQUINE SULFATE
  56. PLAQUENIL [Suspect]
     Active Substance: HYDROXYCHLOROQUINE SULFATE
  57. LEFLUNOMIDE [Suspect]
     Active Substance: LEFLUNOMIDE
     Indication: Rheumatoid arthritis
  58. LEFLUNOMIDE [Suspect]
     Active Substance: LEFLUNOMIDE
  59. LEFLUNOMIDE [Suspect]
     Active Substance: LEFLUNOMIDE
  60. LEFLUNOMIDE [Suspect]
     Active Substance: LEFLUNOMIDE
  61. LEFLUNOMIDE [Suspect]
     Active Substance: LEFLUNOMIDE
  62. LEFLUNOMIDE [Suspect]
     Active Substance: LEFLUNOMIDE
     Indication: Rheumatoid arthritis
  63. LEFLUNOMIDE [Suspect]
     Active Substance: LEFLUNOMIDE
  64. LEFLUNOMIDE [Suspect]
     Active Substance: LEFLUNOMIDE
  65. HYDROXYCHLOROQUINE SULFATE [Suspect]
     Active Substance: HYDROXYCHLOROQUINE SULFATE
     Indication: Rheumatoid arthritis
  66. HYDROXYCHLOROQUINE [Suspect]
     Active Substance: HYDROXYCHLOROQUINE
     Indication: Rheumatoid arthritis
  67. HYDROXYCHLOROQUINE [Suspect]
     Active Substance: HYDROXYCHLOROQUINE
  68. HYDROXYCHLOROQUINE [Suspect]
     Active Substance: HYDROXYCHLOROQUINE
  69. HYDROXYCHLOROQUINE [Suspect]
     Active Substance: HYDROXYCHLOROQUINE
  70. HYDROXYCHLOROQUINE [Suspect]
     Active Substance: HYDROXYCHLOROQUINE
  71. HYDROXYCHLOROQUINE SULFATE [Suspect]
     Active Substance: HYDROXYCHLOROQUINE SULFATE
     Indication: Rheumatoid arthritis
  72. HYDROXYCHLOROQUINE SULFATE [Suspect]
     Active Substance: HYDROXYCHLOROQUINE SULFATE
  73. HYDROXYCHLOROQUINE SULFATE [Suspect]
     Active Substance: HYDROXYCHLOROQUINE SULFATE
  74. HYDROXYCHLOROQUINE SULFATE [Suspect]
     Active Substance: HYDROXYCHLOROQUINE SULFATE
  75. HYDROXYCHLOROQUINE SULFATE [Suspect]
     Active Substance: HYDROXYCHLOROQUINE SULFATE
  76. AZATHIOPRINE [Suspect]
     Active Substance: AZATHIOPRINE
     Indication: Rheumatoid arthritis
  77. AZATHIOPRINE [Suspect]
     Active Substance: AZATHIOPRINE
  78. AZATHIOPRINE [Suspect]
     Active Substance: AZATHIOPRINE
  79. AZATHIOPRINE [Suspect]
     Active Substance: AZATHIOPRINE
  80. AZATHIOPRINE [Suspect]
     Active Substance: AZATHIOPRINE
     Indication: Rheumatoid arthritis
  81. AZATHIOPRINE [Suspect]
     Active Substance: AZATHIOPRINE
  82. XELJANZ [Suspect]
     Active Substance: TOFACITINIB CITRATE
     Indication: Rheumatoid arthritis
  83. XELJANZ [Suspect]
     Active Substance: TOFACITINIB CITRATE
  84. XELJANZ [Suspect]
     Active Substance: TOFACITINIB CITRATE
  85. SULFASALAZINE [Suspect]
     Active Substance: SULFASALAZINE
     Indication: Rheumatoid arthritis
  86. SULFASALAZINE [Suspect]
     Active Substance: SULFASALAZINE
  87. SULFASALAZINE [Suspect]
     Active Substance: SULFASALAZINE
  88. ARAVA [Suspect]
     Active Substance: LEFLUNOMIDE
     Indication: Product used for unknown indication
  89. ARAVA [Suspect]
     Active Substance: LEFLUNOMIDE
  90. BUDESONIDE [Suspect]
     Active Substance: BUDESONIDE
     Indication: Product used for unknown indication
  91. CODEINE [Suspect]
     Active Substance: CODEINE
     Indication: Rheumatoid arthritis
  92. CODEINE [Suspect]
     Active Substance: CODEINE
  93. MAGNESIUM OXIDE [Suspect]
     Active Substance: MAGNESIUM OXIDE
     Indication: Product used for unknown indication
  94. MYOCHRYSINE [Suspect]
     Active Substance: GOLD SODIUM THIOMALATE
     Indication: Rheumatoid arthritis
  95. FOSAMAX [Suspect]
     Active Substance: ALENDRONATE SODIUM
     Indication: Product used for unknown indication
  96. RITUXIMAB [Suspect]
     Active Substance: RITUXIMAB
     Indication: Rheumatoid arthritis
  97. RITUXIMAB [Suspect]
     Active Substance: RITUXIMAB
  98. RITUXIMAB [Suspect]
     Active Substance: RITUXIMAB
  99. RITUXIMAB [Suspect]
     Active Substance: RITUXIMAB
  100. RITUXIMAB [Suspect]
     Active Substance: RITUXIMAB
  101. COSENTYX [Suspect]
     Active Substance: SECUKINUMAB
     Indication: Product used for unknown indication
  102. TALTZ [Suspect]
     Active Substance: IXEKIZUMAB
     Indication: Product used for unknown indication
  103. TOCILIZUMAB [Suspect]
     Active Substance: TOCILIZUMAB
     Indication: Rheumatoid arthritis
  104. TOCILIZUMAB [Suspect]
     Active Substance: TOCILIZUMAB
  105. INFLIXIMAB [Suspect]
     Active Substance: INFLIXIMAB
     Indication: Psoriasis
  106. INFLIXIMAB [Suspect]
     Active Substance: INFLIXIMAB
     Indication: Ankylosing spondylitis
  107. CIMZIA [Suspect]
     Active Substance: CERTOLIZUMAB PEGOL
     Indication: Product used for unknown indication
  108. ERELZI [Suspect]
     Active Substance: ETANERCEPT-SZZS
     Indication: Product used for unknown indication
  109. SIMPONI [Suspect]
     Active Substance: GOLIMUMAB
     Indication: Product used for unknown indication
  110. SIMPONI [Suspect]
     Active Substance: GOLIMUMAB
  111. CHLOROQUINE DIPHOSPHATE [Suspect]
     Active Substance: CHLOROQUINE PHOSPHATE
     Indication: Rheumatoid arthritis
  112. NEORAL [Suspect]
     Active Substance: CYCLOSPORINE
     Indication: Rheumatoid arthritis
  113. GOLD [Suspect]
     Active Substance: GOLD
     Indication: Product used for unknown indication
  114. DOXYCYCLINE HYCLATE [Suspect]
     Active Substance: DOXYCYCLINE HYCLATE
     Indication: Product used for unknown indication
  115. PREDNISONE [Concomitant]
     Active Substance: PREDNISONE
     Indication: Rheumatoid arthritis
     Dates: start: 20160503
  116. PREDNISONE [Concomitant]
     Active Substance: PREDNISONE
     Dates: start: 20160511
  117. PREDNISONE [Concomitant]
     Active Substance: PREDNISONE
  118. PREDNISONE [Concomitant]
     Active Substance: PREDNISONE
  119. PREDNISONE [Concomitant]
     Active Substance: PREDNISONE
  120. PREDNISONE [Concomitant]
     Active Substance: PREDNISONE
  121. PREDNISONE [Concomitant]
     Active Substance: PREDNISONE
  122. LYRICA [Concomitant]
     Active Substance: PREGABALIN
  123. ALENDRONATE SODIUM [Concomitant]
     Active Substance: ALENDRONATE SODIUM
  124. AMLODIPINE [Concomitant]
     Active Substance: AMLODIPINE BESYLATE
  125. ATENOLOL [Concomitant]
     Active Substance: ATENOLOL
  126. ATENOLOL [Concomitant]
     Active Substance: ATENOLOL
  127. ATENOLOL [Concomitant]
     Active Substance: ATENOLOL
  128. CYANOCOBALAMIN [Concomitant]
     Active Substance: CYANOCOBALAMIN
  129. ERGOCALCIFEROL [Concomitant]
     Active Substance: ERGOCALCIFEROL
  130. GOLD [Concomitant]
     Active Substance: GOLD
  131. HYDROCHLOROTHIAZIDE [Concomitant]
     Active Substance: HYDROCHLOROTHIAZIDE
  132. IRON [Concomitant]
     Active Substance: IRON
  133. PRAMIPEXOLE [Concomitant]
     Active Substance: PRAMIPEXOLE\PRAMIPEXOLE DIHYDROCHLORIDE
  134. PROPRANOLOL [Concomitant]
     Active Substance: PROPRANOLOL HYDROCHLORIDE
  135. RAMIPRIL [Concomitant]
     Active Substance: RAMIPRIL
  136. SERTRALINE [Concomitant]
     Active Substance: SERTRALINE HYDROCHLORIDE
  137. SIMPONI [Concomitant]
     Active Substance: GOLIMUMAB
  138. TRAZODONE [Concomitant]
     Active Substance: TRAZODONE HYDROCHLORIDE
     Indication: Rheumatoid arthritis
  139. ASPIRIN [Concomitant]
     Active Substance: ASPIRIN
  140. ALPRAZOLAM [Concomitant]
     Active Substance: ALPRAZOLAM
  141. BISOPROLOL [Concomitant]
     Active Substance: BISOPROLOL\BISOPROLOL FUMARATE
  142. CELEBREX [Concomitant]
     Active Substance: CELECOXIB
  143. ESOMEPRAZOLE [Concomitant]
     Active Substance: ESOMEPRAZOLE
     Indication: Gastrointestinal disorder
  144. FOLIC ACID [Concomitant]
     Active Substance: FOLIC ACID
  145. IRON SUCROSE [Concomitant]
     Active Substance: IRON SUCROSE
  146. METFORMIN [Concomitant]
     Active Substance: METFORMIN HYDROCHLORIDE
  147. MORPHINE SULFATE [Concomitant]
     Active Substance: MORPHINE SULFATE
  148. PANTOPRAZOLE [Concomitant]
     Active Substance: PANTOPRAZOLE
  149. PAROXETINE [Concomitant]
     Active Substance: PAROXETINE
  150. RISEDRONATE SODIUM [Concomitant]
     Active Substance: RISEDRONATE SODIUM
  151. SIMVASTATIN [Concomitant]
     Active Substance: SIMVASTATIN
  152. TELMISARTAN [Concomitant]
     Active Substance: TELMISARTAN
  153. AMLODIPINE BESYLATE [Concomitant]
     Active Substance: AMLODIPINE BESYLATE
  154. BISOPROLOL FUMARATE\HYDROCHLOROTHIAZIDE [Concomitant]
     Active Substance: BISOPROLOL FUMARATE\HYDROCHLOROTHIAZIDE
  155. ESOMEPRAZOLE MAGNESIUM [Concomitant]
     Active Substance: ESOMEPRAZOLE\ESOMEPRAZOLE MAGNESIUM\ESOMEPRAZOLE MAGNESIUM DIHYDRATE
  156. PAROXETINE HYDROCHLORIDE [Concomitant]
     Active Substance: PAROXETINE HYDROCHLORIDE\PAROXETINE HYDROCHLORIDE ANHYDROUS
  157. PRAMIPEXOLE DIHYDROCHLORIDE [Concomitant]
     Active Substance: PRAMIPEXOLE DIHYDROCHLORIDE
  158. RISEDRONATE SODIUM [Concomitant]
     Active Substance: RISEDRONATE SODIUM
  159. SACCHARATED IRON OXIDE [Concomitant]
     Active Substance: IRON SUCROSE
  160. SERTRALINE HYDROCHLORIDE [Concomitant]
     Active Substance: SERTRALINE HYDROCHLORIDE
  161. ACETOPHEN [Concomitant]
  162. CIMZIA [Concomitant]
     Active Substance: CERTOLIZUMAB PEGOL
  163. WELLBUTRIN [Concomitant]
     Active Substance: BUPROPION HYDROCHLORIDE
  164. PLAQUENIL [Concomitant]
     Active Substance: HYDROXYCHLOROQUINE SULFATE
  165. HYDROXYCHLOROQUINE SULFATE [Concomitant]
     Active Substance: HYDROXYCHLOROQUINE SULFATE
     Indication: Rheumatoid arthritis
  166. HYDROXYCHLOROQUINE SULFATE [Concomitant]
     Active Substance: HYDROXYCHLOROQUINE SULFATE

REACTIONS (55)
  - Drug ineffective [Recovered/Resolved]
  - Treatment failure [Unknown]
  - Product use issue [Not Recovered/Not Resolved]
  - Therapeutic response decreased [Unknown]
  - Therapeutic product effect decreased [Not Recovered/Not Resolved]
  - Rheumatoid arthritis [Not Recovered/Not Resolved]
  - Hepatitis [Not Recovered/Not Resolved]
  - Pneumonia [Not Recovered/Not Resolved]
  - Hepatic enzyme increased [Not Recovered/Not Resolved]
  - Loss of personal independence in daily activities [Not Recovered/Not Resolved]
  - Pulmonary fibrosis [Not Recovered/Not Resolved]
  - Arthralgia [Not Recovered/Not Resolved]
  - Joint swelling [Not Recovered/Not Resolved]
  - Arthritis [Not Recovered/Not Resolved]
  - Arthropathy [Not Recovered/Not Resolved]
  - Abdominal pain [Not Recovered/Not Resolved]
  - Blood parathyroid hormone decreased [Not Recovered/Not Resolved]
  - C-reactive protein increased [Not Recovered/Not Resolved]
  - Drug eruption [Not Recovered/Not Resolved]
  - Drug hypersensitivity [Not Recovered/Not Resolved]
  - Drug intolerance [Not Recovered/Not Resolved]
  - Drug tolerance decreased [Not Recovered/Not Resolved]
  - Erythema [Not Recovered/Not Resolved]
  - Granuloma skin [Not Recovered/Not Resolved]
  - Hypercalcaemia [Not Recovered/Not Resolved]
  - Hypersensitivity [Not Recovered/Not Resolved]
  - Inflammation [Not Recovered/Not Resolved]
  - Insomnia [Not Recovered/Not Resolved]
  - Musculoskeletal stiffness [Not Recovered/Not Resolved]
  - Pain [Not Recovered/Not Resolved]
  - Panniculitis [Not Recovered/Not Resolved]
  - Rash pruritic [Not Recovered/Not Resolved]
  - Red blood cell sedimentation rate increased [Not Recovered/Not Resolved]
  - Rheumatoid nodule [Not Recovered/Not Resolved]
  - Skin necrosis [Not Recovered/Not Resolved]
  - Skin ulcer [Not Recovered/Not Resolved]
  - Synovitis [Not Recovered/Not Resolved]
  - Ulcer [Not Recovered/Not Resolved]
  - Hypertension [Not Recovered/Not Resolved]
  - Rheumatoid factor positive [Not Recovered/Not Resolved]
  - Alanine aminotransferase increased [Not Recovered/Not Resolved]
  - Aspartate aminotransferase increased [Not Recovered/Not Resolved]
  - Basal cell carcinoma [Not Recovered/Not Resolved]
  - Headache [Not Recovered/Not Resolved]
  - Rash [Not Recovered/Not Resolved]
  - Pruritus [Not Recovered/Not Resolved]
  - Peripheral swelling [Not Recovered/Not Resolved]
  - Deafness [Not Recovered/Not Resolved]
  - Condition aggravated [Not Recovered/Not Resolved]
  - Contraindicated product administered [Not Recovered/Not Resolved]
  - Prescribed underdose [Not Recovered/Not Resolved]
  - Off label use [Not Recovered/Not Resolved]
  - Fatigue [Not Recovered/Not Resolved]
  - Nausea [Not Recovered/Not Resolved]
  - Vomiting [Not Recovered/Not Resolved]

NARRATIVE: CASE EVENT DATE: 20130101
